FAERS Safety Report 25110607 (Version 1)
Quarter: 2025Q1

REPORT INFORMATION
  Report Type: Spontaneous
  Country: US (occurrence: US)
  Receive Date: 20250324
  Receipt Date: 20250324
  Transmission Date: 20250408
  Serious: No
  Sender: BIOGEN
  Company Number: US-BIOGEN-2019BI00728667

PATIENT
  Sex: Female

DRUGS (14)
  1. TECFIDERA [Suspect]
     Active Substance: DIMETHYL FUMARATE
     Indication: Multiple sclerosis
     Dosage: TAKE 1 CAPSULE BY MOUTH TWICE DAILY
     Route: 050
     Dates: start: 20200406
  2. TECFIDERA [Suspect]
     Active Substance: DIMETHYL FUMARATE
     Route: 050
     Dates: start: 20190318
  3. CLONAZEPAM [Concomitant]
     Active Substance: CLONAZEPAM
     Route: 050
  4. DULOXETINE [Concomitant]
     Active Substance: DULOXETINE
     Route: 050
  5. DULOXETINE [Concomitant]
     Active Substance: DULOXETINE
     Route: 050
  6. HYDROCHLOROTHIAZIDE [Concomitant]
     Active Substance: HYDROCHLOROTHIAZIDE
     Route: 050
  7. HYDROCHLOROTHIAZIDE [Concomitant]
     Active Substance: HYDROCHLOROTHIAZIDE
     Route: 050
  8. METOPROLOL TARTRATE [Concomitant]
     Active Substance: METOPROLOL TARTRATE
     Route: 050
  9. NAPROXEN [Concomitant]
     Active Substance: NAPROXEN
     Route: 050
  10. NITROFURANTOIN [Concomitant]
     Active Substance: NITROFURANTOIN
     Route: 050
  11. TYLENOL [Concomitant]
     Active Substance: ACETAMINOPHEN
     Route: 050
  12. ACETAMINOPHEN\HYDROCODONE [Concomitant]
     Active Substance: ACETAMINOPHEN\HYDROCODONE
     Route: 050
  13. GABAPENTIN [Concomitant]
     Active Substance: GABAPENTIN
     Route: 050
  14. MELOXICAM [Concomitant]
     Active Substance: MELOXICAM
     Route: 050

REACTIONS (13)
  - Multiple sclerosis [Not Recovered/Not Resolved]
  - Hyperhidrosis [Not Recovered/Not Resolved]
  - Flatulence [Not Recovered/Not Resolved]
  - Muscle spasms [Not Recovered/Not Resolved]
  - Abdominal discomfort [Not Recovered/Not Resolved]
  - Influenza like illness [Not Recovered/Not Resolved]
  - Mobility decreased [Not Recovered/Not Resolved]
  - Balance disorder [Not Recovered/Not Resolved]
  - Asthenia [Unknown]
  - Fatigue [Unknown]
  - Flushing [Not Recovered/Not Resolved]
  - Abdominal pain upper [Not Recovered/Not Resolved]
  - Hot flush [Not Recovered/Not Resolved]
